FAERS Safety Report 4530155-X (Version None)
Quarter: 2004Q4

REPORT INFORMATION
  Report Type: 
  Country: None (occurrence: None)
  Receive Date: 20041215
  Receipt Date: 20041215
  Transmission Date: 20050328
  Serious: Yes (Hospitalization)
  Sender: FDA-Public Use
  Company Number: None

PATIENT
  Sex: Male
  Weight: 67.1324 kg

DRUGS (2)
  1. PACLITAXEL [Suspect]
     Indication: CHEMOTHERAPY
     Dosage: 20MG/MG  DAILY X 5 INTRAVENOUS
     Route: 042
     Dates: start: 20041011, end: 20041015
  2. CISPLATIN [Suspect]
     Indication: CHEMOTHERAPY
     Dosage: 15 MG/M2  DAILY X 5 INTRAVENOUS
     Route: 042
     Dates: start: 20041011, end: 20041015

REACTIONS (6)
  - DEEP VEIN THROMBOSIS [None]
  - DEHYDRATION [None]
  - DIARRHOEA [None]
  - HAEMATEMESIS [None]
  - HYPERCOAGULATION [None]
  - PNEUMONIA ASPIRATION [None]
